FAERS Safety Report 8298057-3 (Version None)
Quarter: 2012Q2

REPORT INFORMATION
  Report Type: 
  Country: None (occurrence: None)
  Receive Date: 20120419
  Receipt Date: 20120327
  Transmission Date: 20120825
  Serious: Yes (Hospitalization)
  Sender: FDA-Public Use
  Company Number: SG-BAXTER-2012BAX002332

PATIENT
  Sex: Male
  Weight: 46 kg

DRUGS (2)
  1. NAVELBINE [Suspect]
     Indication: NON-SMALL CELL LUNG CANCER
     Route: 048
     Dates: end: 20120312
  2. SORAFENIB [Suspect]
     Indication: NON-SMALL CELL LUNG CANCER
     Route: 048
     Dates: end: 20120312

REACTIONS (1)
  - PERIPHERAL ISCHAEMIA [None]
